FAERS Safety Report 26144314 (Version 1)
Quarter: 2025Q4

REPORT INFORMATION
  Report Type: Report from Study
  Country: CN (occurrence: CN)
  Receive Date: 20251211
  Receipt Date: 20251211
  Transmission Date: 20260118
  Serious: Yes (Other)
  Sender: ROCHE
  Company Number: CN-ROCHE-10000420128

PATIENT
  Age: 59 Year
  Sex: Female
  Weight: 63 kg

DRUGS (16)
  1. RITUXIMAB [Suspect]
     Active Substance: RITUXIMAB
     Indication: Diffuse large B-cell lymphoma
     Dosage: DRUG FREQUENCY ONCE
     Route: 041
     Dates: start: 20241204, end: 20241204
  2. RITUXIMAB [Suspect]
     Active Substance: RITUXIMAB
     Route: 041
     Dates: start: 20250629, end: 20250629
  3. POLATUZUMAB VEDOTIN [Suspect]
     Active Substance: POLATUZUMAB VEDOTIN
     Indication: Diffuse large B-cell lymphoma
     Dosage: DRUG FREQUENCY ONCE
     Route: 041
     Dates: start: 20241204, end: 20241204
  4. POLATUZUMAB VEDOTIN [Suspect]
     Active Substance: POLATUZUMAB VEDOTIN
     Route: 041
     Dates: start: 20250630, end: 20250630
  5. CYCLOPHOSPHAMIDE [Suspect]
     Active Substance: CYCLOPHOSPHAMIDE
     Indication: Diffuse large B-cell lymphoma
     Dosage: FREQUENCY ONCE.
     Route: 041
     Dates: start: 20250630, end: 20250630
  6. CYCLOPHOSPHAMIDE [Suspect]
     Active Substance: CYCLOPHOSPHAMIDE
     Dosage: FREQUENCY ONCE.
     Route: 041
     Dates: start: 20241205, end: 20241205
  7. EPIRUBICIN [Suspect]
     Active Substance: EPIRUBICIN
     Indication: Diffuse large B-cell lymphoma
     Dosage: DRUG FREQUENCY ONCE
     Route: 041
     Dates: start: 20241205, end: 20241205
  8. EPIRUBICIN [Suspect]
     Active Substance: EPIRUBICIN
     Route: 041
     Dates: start: 20250630, end: 20250630
  9. PREDNISONE [Suspect]
     Active Substance: PREDNISONE
     Indication: Diffuse large B-cell lymphoma
     Route: 048
     Dates: start: 20241205, end: 20241209
  10. PREDNISONE [Suspect]
     Active Substance: PREDNISONE
     Route: 048
     Dates: start: 20250630, end: 20250704
  11. MEROPENEM [Suspect]
     Active Substance: MEROPENEM
     Indication: Diffuse large B-cell lymphoma
  12. VANCOMYCIN [Suspect]
     Active Substance: VANCOMYCIN
     Indication: Diffuse large B-cell lymphoma
  13. Omeprazole tablets [Concomitant]
     Indication: Prophylaxis
     Route: 048
  14. ACYCLOVIR [Concomitant]
     Active Substance: ACYCLOVIR
     Route: 048
  15. SULFAMETHOXAZOLE [Concomitant]
     Active Substance: SULFAMETHOXAZOLE
     Indication: Prophylaxis
     Route: 048
  16. GANCICLOVIR [Concomitant]
     Active Substance: GANCICLOVIR

REACTIONS (2)
  - Procalcitonin increased [Not Recovered/Not Resolved]
  - Hypokalaemia [Recovered/Resolved]

NARRATIVE: CASE EVENT DATE: 20250831
